FAERS Safety Report 4589255-0 (Version None)
Quarter: 2005Q1

REPORT INFORMATION
  Report Type: 
  Country: None (occurrence: None)
  Receive Date: 20050217
  Receipt Date: 20050217
  Transmission Date: 20050727
  Serious: Yes (Hospitalization)
  Sender: FDA-Public Use
  Company Number: None

PATIENT
  Age: 2 Year
  Sex: Female
  Weight: 10 kg

DRUGS (1)
  1. HEPARIN [Suspect]
     Dosage: ONCE DAILY AFTER IV ANTIBIOTIC

REACTIONS (3)
  - BLOOD CULTURE POSITIVE [None]
  - CATHETER SITE RELATED REACTION [None]
  - PYREXIA [None]
